FAERS Safety Report 8998951 (Version 2)
Quarter: 2013Q1

REPORT INFORMATION
  Report Type: Report from Study
  Country: US (occurrence: US)
  Receive Date: 20130103
  Receipt Date: 20130225
  Transmission Date: 20140127
  Serious: Yes (Death, Hospitalization, Other)
  Sender: FDA-Public Use
  Company Number: US-ASTELLAS-2012US012757

PATIENT
  Age: 74 Year
  Sex: Female
  Weight: 61 kg

DRUGS (3)
  1. ERLOTINIB TABLET [Suspect]
     Indication: NON-SMALL CELL LUNG CANCER
     Dosage: 150 MG, UID/QD
     Route: 048
     Dates: start: 20120820, end: 20120910
  2. ERLOTINIB TABLET [Suspect]
     Dosage: 75 MG, UID/QD
     Route: 048
     Dates: start: 20120910, end: 20120914
  3. CLINDAMYCIN [Concomitant]
     Indication: RASH
     Dosage: UNK
     Route: 048

REACTIONS (15)
  - Death [Fatal]
  - Haemoglobin decreased [Recovered/Resolved]
  - Renal disorder [Unknown]
  - Liver disorder [Unknown]
  - Blood pressure decreased [Unknown]
  - Gait disturbance [Unknown]
  - Mouth haemorrhage [Unknown]
  - Mucosal inflammation [Unknown]
  - Pain [Unknown]
  - Cough [Unknown]
  - Fatigue [Unknown]
  - Dyspnoea [Unknown]
  - Diarrhoea [Unknown]
  - Rash [Unknown]
  - Epistaxis [Unknown]
